FAERS Safety Report 6419607-5 (Version None)
Quarter: 2009Q4

REPORT INFORMATION
  Report Type: 
  Country: None (occurrence: None)
  Receive Date: 20091013
  Receipt Date: 20090310
  Transmission Date: 20100525
  Serious: Yes (Hospitalization)
  Sender: FDA-Public Use
  Company Number: 1000005024

PATIENT
  Age: 21 Year
  Sex: Female

DRUGS (1)
  1. LEXAPRO [Suspect]
     Dosage: 20 DOSAGE FORMS, ONCE, ORAL
     Route: 048

REACTIONS (1)
  - INTENTIONAL OVERDOSE [None]
